FAERS Safety Report 23074982 (Version 19)
Quarter: 2024Q1

REPORT INFORMATION
  Report Type: Spontaneous
  Country: IN (occurrence: IN)
  Receive Date: 20231017
  Receipt Date: 20240314
  Transmission Date: 20240410
  Serious: Yes (Hospitalization, Other)
  Sender: FDA-Public Use
  Company Number: IN-PFIZER INC-PV202300164074

PATIENT
  Age: 34 Year
  Sex: Female
  Weight: 53.5 kg

DRUGS (3)
  1. LORLATINIB [Suspect]
     Active Substance: LORLATINIB
     Indication: Osteosarcoma
     Dosage: 100 MG, 1X/DAY
     Route: 048
     Dates: start: 20230919
  2. LORLATINIB [Suspect]
     Active Substance: LORLATINIB
     Indication: Lung adenocarcinoma
     Dosage: 75 MG, 1X/DAY
     Route: 048
     Dates: start: 20231101
  3. LORLATINIB [Suspect]
     Active Substance: LORLATINIB
     Dosage: 75 MG, 1X/DAY
     Route: 048
     Dates: end: 20240214

REACTIONS (70)
  - Haemoglobin decreased [Not Recovered/Not Resolved]
  - Disease recurrence [Not Recovered/Not Resolved]
  - Bacterial infection [Unknown]
  - Pericardial effusion [Unknown]
  - Pleural effusion [Unknown]
  - Pneumonia [Unknown]
  - Hypoaesthesia [Unknown]
  - Oxygen saturation decreased [Unknown]
  - Blood potassium increased [Unknown]
  - Malaise [Unknown]
  - Myalgia [Unknown]
  - Malaria [Unknown]
  - Fatigue [Not Recovered/Not Resolved]
  - Asthenia [Unknown]
  - Flatulence [Unknown]
  - Abdominal distension [Not Recovered/Not Resolved]
  - Dyspepsia [Recovered/Resolved]
  - Anaemia [Unknown]
  - Depression [Unknown]
  - Gait disturbance [Not Recovered/Not Resolved]
  - Dyspnoea exertional [Not Recovered/Not Resolved]
  - Decreased appetite [Not Recovered/Not Resolved]
  - Chest pain [Not Recovered/Not Resolved]
  - Cough [Not Recovered/Not Resolved]
  - Blood glucose increased [Not Recovered/Not Resolved]
  - Memory impairment [Not Recovered/Not Resolved]
  - Nausea [Not Recovered/Not Resolved]
  - Constipation [Not Recovered/Not Resolved]
  - Abdominal discomfort [Not Recovered/Not Resolved]
  - Abdominal pain upper [Not Recovered/Not Resolved]
  - Chest discomfort [Not Recovered/Not Resolved]
  - Respiratory disorder [Not Recovered/Not Resolved]
  - Aspartate aminotransferase increased [Unknown]
  - Alanine aminotransferase increased [Unknown]
  - Pain [Recovering/Resolving]
  - Dyspnoea [Not Recovered/Not Resolved]
  - Painful respiration [Not Recovered/Not Resolved]
  - Low density lipoprotein increased [Unknown]
  - Hepatomegaly [Unknown]
  - Pleural effusion [Unknown]
  - Blood urea increased [Unknown]
  - Blood cholesterol increased [Unknown]
  - Dry skin [Unknown]
  - Neck pain [Not Recovered/Not Resolved]
  - Swelling [Not Recovered/Not Resolved]
  - Phlebitis [Not Recovered/Not Resolved]
  - Lymphadenopathy [Not Recovered/Not Resolved]
  - Menstruation irregular [Unknown]
  - Anxiety [Unknown]
  - Swelling face [Not Recovered/Not Resolved]
  - Musculoskeletal stiffness [Not Recovered/Not Resolved]
  - Insomnia [Recovering/Resolving]
  - Protein total increased [Not Recovered/Not Resolved]
  - Musculoskeletal discomfort [Unknown]
  - Fat tissue increased [Unknown]
  - Hypopnoea [Unknown]
  - Amylase increased [Unknown]
  - Paraesthesia [Unknown]
  - Sleep disorder [Unknown]
  - Heavy menstrual bleeding [Recovering/Resolving]
  - Blood triglycerides increased [Unknown]
  - Somnolence [Unknown]
  - Back pain [Unknown]
  - Emotional disorder [Unknown]
  - Burning sensation [Unknown]
  - Anger [Unknown]
  - Neoplasm progression [Not Recovered/Not Resolved]
  - Pyrexia [Unknown]
  - Vomiting [Unknown]
  - Product dose omission issue [Unknown]

NARRATIVE: CASE EVENT DATE: 20231012
